FAERS Safety Report 4960100-4 (Version None)
Quarter: 2006Q1

REPORT INFORMATION
  Report Type: 
  Country: None (occurrence: None)
  Receive Date: 20060328
  Receipt Date: 20060313
  Transmission Date: 20060701
  Serious: Yes (Hospitalization)
  Sender: FDA-Public Use
  Company Number: US-2006-004588

PATIENT
  Age: 82 Year
  Sex: Male

DRUGS (17)
  1. CAMPATH [Suspect]
     Indication: CHRONIC LYMPHOCYTIC LEUKAEMIA
     Dosage: 10 MG, 1 DOSE, SUBCUTANEOUS; SEE IMAGE
     Route: 058
     Dates: start: 20060127, end: 20060127
  2. CAMPATH [Suspect]
     Indication: CHRONIC LYMPHOCYTIC LEUKAEMIA
     Dosage: 10 MG, 1 DOSE, SUBCUTANEOUS; SEE IMAGE
     Route: 058
     Dates: start: 20060206, end: 20060208
  3. CAMPATH [Suspect]
     Indication: CHRONIC LYMPHOCYTIC LEUKAEMIA
     Dosage: 10 MG, 1 DOSE, SUBCUTANEOUS; SEE IMAGE
     Route: 058
     Dates: start: 20060210, end: 20060213
  4. CAMPATH [Suspect]
     Indication: CHRONIC LYMPHOCYTIC LEUKAEMIA
     Dosage: 10 MG, 1 DOSE, SUBCUTANEOUS; SEE IMAGE
     Route: 058
     Dates: start: 20060215, end: 20060217
  5. CAMPATH [Suspect]
     Indication: CHRONIC LYMPHOCYTIC LEUKAEMIA
     Dosage: 10 MG, 1 DOSE, SUBCUTANEOUS; SEE IMAGE
     Route: 058
     Dates: start: 20060222, end: 20060303
  6. TYLENOL (CAPLET) [Concomitant]
  7. BENADRYL ^ACHE^ (AMMONIUM CHLORIDE, MENTHOL, DIPHENHYDRAMINE HYDROCHLO [Concomitant]
  8. DECADRON [Concomitant]
  9. BACTRIM [Concomitant]
  10. ACYCLOVIR [Concomitant]
  11. ALLOPURINOL [Concomitant]
  12. DIFLUCAN [Concomitant]
  13. PROSCAR [Concomitant]
  14. VITAMINS [Concomitant]
  15. COMBIVENT /GFR/(IPRATROPIUM BROMIDE) INHALER [Concomitant]
  16. ADVAIR (FLUTICASONE PROPIONATE, SALMETEROL XINAFORATE) INHALER [Concomitant]
  17. ATROVENT [Concomitant]
     Route: 055

REACTIONS (31)
  - AMNESIA [None]
  - ANOREXIA [None]
  - ASTHMA [None]
  - BLOOD PRESSURE DECREASED [None]
  - CARDIAC INFECTION [None]
  - CARDIAC TAMPONADE [None]
  - CATHETER SITE PAIN [None]
  - CHILLS [None]
  - DELUSION [None]
  - DISORIENTATION [None]
  - DYSGRAPHIA [None]
  - FATIGUE [None]
  - FEELING ABNORMAL [None]
  - HEADACHE [None]
  - INCOHERENT [None]
  - INJECTION SITE ERYTHEMA [None]
  - INJECTION SITE RASH [None]
  - INJECTION SITE SWELLING [None]
  - LOSS OF CONSCIOUSNESS [None]
  - LYMPHOCYTE COUNT DECREASED [None]
  - LYMPHOCYTE COUNT INCREASED [None]
  - MENTAL STATUS CHANGES [None]
  - MUSCLE SPASMS [None]
  - PERICARDIAL EFFUSION [None]
  - POST PROCEDURAL COMPLICATION [None]
  - PRURITUS [None]
  - PUNCTURE SITE REACTION [None]
  - PYREXIA [None]
  - SYNCOPE [None]
  - URINARY INCONTINENCE [None]
  - VIRAL INFECTION [None]
